FAERS Safety Report 7319347-4 (Version None)
Quarter: 2011Q1

REPORT INFORMATION
  Report Type: 
  Country: None (occurrence: None)
  Receive Date: 20110228
  Receipt Date: 20100209
  Transmission Date: 20110831
  Serious: No
  Sender: FDA-Public Use
  Company Number: A0843752A

PATIENT
  Age: 52 Year
  Sex: Male

DRUGS (2)
  1. KLONOPIN [Concomitant]
  2. LAMICTAL [Suspect]
     Dosage: 25MG PER DAY
     Route: 048
     Dates: start: 20091120, end: 20091223

REACTIONS (2)
  - DERMATITIS ACNEIFORM [None]
  - ALOPECIA [None]
